FAERS Safety Report 4362991-7 (Version None)
Quarter: 2004Q2

REPORT INFORMATION
  Report Type: 
  Country: None (occurrence: None)
  Receive Date: 20040517
  Receipt Date: 20040409
  Transmission Date: 20050107
  Serious: No
  Sender: FDA-Public Use
  Company Number: S04-USA-01930-01

PATIENT
  Age: 88 Year
  Sex: Female

DRUGS (9)
  1. NAMENDA [Suspect]
     Indication: DEMENTIA ALZHEIMER'S TYPE
     Dosage: 15 MG QD PO
     Route: 048
     Dates: start: 20040405
  2. NAMENDA [Suspect]
     Indication: DEMENTIA ALZHEIMER'S TYPE
     Dosage: 5 MG QD PO
     Route: 048
     Dates: start: 20040322, end: 20040328
  3. NAMENDA [Suspect]
     Indication: DEMENTIA ALZHEIMER'S TYPE
     Dosage: 10 MG QD PO
     Route: 048
     Dates: start: 20040329, end: 20040404
  4. ARICEPT [Concomitant]
  5. VISTARIL [Concomitant]
  6. NORVASC [Concomitant]
  7. ATENOLOL [Concomitant]
  8. MEVACOR [Concomitant]
  9. NITROGLYCERIN [Concomitant]

REACTIONS (1)
  - DIZZINESS [None]
